FAERS Safety Report 4368377-3 (Version None)
Quarter: 2004Q2

REPORT INFORMATION
  Report Type: 
  Country: None (occurrence: None)
  Receive Date: 20040528
  Receipt Date: 20040514
  Transmission Date: 20050107
  Serious: Yes (Other)
  Sender: FDA-Public Use
  Company Number: 2004214304JP

PATIENT
  Age: 36 Year
  Sex: Male

DRUGS (3)
  1. SOLU-MEDROL [Suspect]
     Indication: HEPATITIS FULMINANT
     Dosage: IV
     Route: 042
  2. SANDIMMUNE [Suspect]
     Indication: HEPATITIS FULMINANT
  3. FERON(INTERFERON BETA) [Suspect]
     Indication: HEPATITIS FULMINANT

REACTIONS (1)
  - BRADYCARDIA [None]
